FAERS Safety Report 5154912-4 (Version None)
Quarter: 2006Q4

REPORT INFORMATION
  Report Type: 
  Country: None (occurrence: None)
  Receive Date: 20061120
  Receipt Date: 20061120
  Transmission Date: 20070319
  Serious: No
  Sender: FDA-Public Use
  Company Number: None

PATIENT
  Sex: Male
  Weight: 83.4619 kg

DRUGS (1)
  1. TUBERCULIN PURIFIED PROTEIN    5 US UNITS     AVENTIS PASTEUR LIMITED [Suspect]
     Dosage: 0.5ML   X1   IM
     Route: 030
     Dates: start: 20061117

REACTIONS (1)
  - WRONG DRUG ADMINISTERED [None]
